FAERS Safety Report 5150599-5 (Version None)
Quarter: 2006Q4

REPORT INFORMATION
  Report Type: 
  Country: None (occurrence: None)
  Receive Date: 20061114
  Receipt Date: 20061109
  Transmission Date: 20070319
  Serious: Yes (Other)
  Sender: FDA-Public Use
  Company Number: AU-BRISTOL-MYERS SQUIBB COMPANY-13572078

PATIENT
  Age: 16 Year
  Sex: Female
  Weight: 50 kg

DRUGS (3)
  1. MAXIPIME [Suspect]
     Indication: RESPIRATORY DISORDER
     Route: 042
     Dates: start: 20050901
  2. PARIET [Concomitant]
  3. FLIXOTIDE [Concomitant]

REACTIONS (2)
  - URTICARIA [None]
  - WHEEZING [None]
